FAERS Safety Report 4424298-9 (Version None)
Quarter: 2004Q3

REPORT INFORMATION
  Report Type: 
  Country: None (occurrence: None)
  Receive Date: 20040806
  Receipt Date: 20040806
  Transmission Date: 20050211
  Serious: Yes (Hospitalization)
  Sender: FDA-Public Use
  Company Number: None

PATIENT
  Age: 75 Year
  Sex: Male
  Weight: 62.5964 kg

DRUGS (10)
  1. CLONIDINE [Suspect]
     Indication: HYPERTENSIVE CRISIS
     Dosage: 0.1MG  STAT  ORAL
     Route: 048
     Dates: start: 20040714, end: 20040714
  2. ASPIRIN [Concomitant]
  3. CLOPIDOGREL [Concomitant]
  4. HYDROCHLOROTHIAZIDE [Concomitant]
  5. HYDROCODONE/APAP-ES [Concomitant]
  6. LISINOPRIL [Concomitant]
  7. NIFEDIPINE [Concomitant]
  8. NITROGLYCERIN [Concomitant]
  9. NITROGLYCERIN TAB [Concomitant]
  10. PRAZOSIN HCL [Concomitant]

REACTIONS (7)
  - ARTHRITIS [None]
  - DIZZINESS [None]
  - FALL [None]
  - HEAD INJURY [None]
  - HYPERTENSION [None]
  - JOINT INJURY [None]
  - TREATMENT NONCOMPLIANCE [None]
